FAERS Safety Report 4332801-2 (Version None)
Quarter: 2004Q1

REPORT INFORMATION
  Report Type: 
  Country: None (occurrence: None)
  Receive Date: 20040330
  Receipt Date: 20040308
  Transmission Date: 20041129
  Serious: Yes (Hospitalization)
  Sender: FDA-Public Use
  Company Number: D01200400768

PATIENT

DRUGS (5)
  1. (FONDAPARINUX) - SOLUTION - UNIT DOSE: UNKNOWN [Suspect]
     Indication: ANGINA UNSTABLE
     Dosage: 2.5 MG QD
     Route: 058
     Dates: start: 20040303
  2. GPIIB/ IIIA ANTAGONISTS, [Concomitant]
  3. CLOPIDOGREL [Concomitant]
  4. REOPRO [Concomitant]
  5. HEPARIN [Concomitant]

REACTIONS (4)
  - CARDIAC ARREST [None]
  - HAEMATEMESIS [None]
  - THROMBOSIS [None]
  - VENTRICULAR FIBRILLATION [None]
